FAERS Safety Report 6237872-4 (Version None)
Quarter: 2009Q2

REPORT INFORMATION
  Report Type: 
  Country: None (occurrence: None)
  Receive Date: 20090620
  Receipt Date: 20090608
  Transmission Date: 20091009
  Serious: Yes (Hospitalization)
  Sender: FDA-Public Use
  Company Number: US-MYLANLABS-2009S1010097

PATIENT
  Age: 15 Year
  Sex: Female
  Weight: 60 kg

DRUGS (1)
  1. FUROSEMIDE [Suspect]
     Indication: WEIGHT DECREASED
     Dosage: TOOK 1-2 TABLETS AT NIGHT EVERY 3-4 DAYS

REACTIONS (2)
  - ALKALOSIS HYPOKALAEMIC [None]
  - DRUG ABUSE [None]
